FAERS Safety Report 16338062 (Version 4)
Quarter: 2020Q4

REPORT INFORMATION
  Report Type: Report from Study
  Country: US (occurrence: US)
  Receive Date: 20190521
  Receipt Date: 20201231
  Transmission Date: 20210113
  Serious: No
  Sender: FDA-Public Use
  Company Number: PHEH2019US021271

PATIENT
  Age: 23 Year
  Sex: Male

DRUGS (1)
  1. COSENTYX [Suspect]
     Active Substance: SECUKINUMAB
     Indication: PSORIASIS
     Dosage: 300 MG, QMO
     Route: 058
     Dates: start: 20190306

REACTIONS (4)
  - Skin plaque [Unknown]
  - Product dose omission issue [Unknown]
  - Skin exfoliation [Not Recovered/Not Resolved]
  - Symptom recurrence [Unknown]

NARRATIVE: CASE EVENT DATE: 20190306
